FAERS Safety Report 13943561 (Version 2)
Quarter: 2017Q4

REPORT INFORMATION
  Report Type: Spontaneous
  Country: IT (occurrence: IT)
  Receive Date: 20170907
  Receipt Date: 20171018
  Transmission Date: 20180320
  Serious: Yes (Hospitalization)
  Sender: FDA-Public Use
  Company Number: IT-ROCHE-1987004

PATIENT
  Age: 81 Year
  Sex: Female

DRUGS (2)
  1. ARAVA [Interacting]
     Active Substance: LEFLUNOMIDE
     Indication: PSORIATIC ARTHROPATHY
     Dosage: 20 MG , BLISTER PACK, 30 TABLET  EVERY OTHER DAY
     Route: 048
     Dates: start: 20130101, end: 20170501
  2. MABTHERA [Suspect]
     Active Substance: RITUXIMAB
     Indication: PSORIATIC ARTHROPATHY
     Route: 042
     Dates: start: 20130101, end: 20170501

REACTIONS (2)
  - Transitional cell carcinoma [Recovered/Resolved with Sequelae]
  - Drug interaction [Unknown]

NARRATIVE: CASE EVENT DATE: 20170501
